FAERS Safety Report 25866388 (Version 2)
Quarter: 2025Q4

REPORT INFORMATION
  Report Type: Spontaneous
  Country: US (occurrence: US)
  Receive Date: 20250930
  Receipt Date: 20251024
  Transmission Date: 20260118
  Serious: Yes (Death, Hospitalization)
  Sender: SANDOZ
  Company Number: US-SANDOZ-SDZ2025US071594

PATIENT
  Age: 81 Year
  Sex: Male

DRUGS (2)
  1. DUPIXENT [Suspect]
     Active Substance: DUPILUMAB
     Indication: Pemphigoid
     Route: 065
  2. MYCOPHENOLATE MOFETIL [Suspect]
     Active Substance: MYCOPHENOLATE MOFETIL
     Indication: Product used for unknown indication
     Dosage: UNK
     Route: 065

REACTIONS (1)
  - Scabies [Fatal]
